FAERS Safety Report 18124189 (Version 1)
Quarter: 2020Q3

REPORT INFORMATION
  Report Type: Spontaneous
  Country: US (occurrence: US)
  Receive Date: 20200807
  Receipt Date: 20200807
  Transmission Date: 20201103
  Serious: No
  Sender: FDA-Public Use
  Company Number: US-FRESENIUS KABI-FK202008133

PATIENT
  Age: 70 Year
  Sex: Female

DRUGS (1)
  1. KETOROLAC TROMETHAMINE INJECTION (MANUFACTURER UNKNOWN) [Suspect]
     Active Substance: KETOROLAC TROMETHAMINE
     Indication: SCIATICA
     Dosage: UNKNOWN
     Route: 030
     Dates: start: 20190926, end: 20190926

REACTIONS (3)
  - Hypersensitivity [Recovering/Resolving]
  - Hypersensitivity [Recovered/Resolved]
  - Diarrhoea [Recovered/Resolved]

NARRATIVE: CASE EVENT DATE: 20191013
